FAERS Safety Report 26184018 (Version 1)
Quarter: 2025Q4

REPORT INFORMATION
  Report Type: Spontaneous
  Country: US (occurrence: US)
  Receive Date: 20251222
  Receipt Date: 20251222
  Transmission Date: 20260117
  Serious: Yes (Hospitalization)
  Sender: KALVISTA PHARMACEUTICALS
  Company Number: US-KP-00187

PATIENT
  Age: 19 Year
  Sex: Female

DRUGS (1)
  1. SEBETRALSTAT [Suspect]
     Active Substance: SEBETRALSTAT
     Indication: Hereditary angioedema
     Dosage: TIME INTERVAL: AS NECESSARY
     Route: 048

REACTIONS (1)
  - Hypersensitivity [Unknown]
